FAERS Safety Report 24446383 (Version 3)
Quarter: 2024Q4

REPORT INFORMATION
  Report Type: Spontaneous
  Country: JP (occurrence: JP)
  Receive Date: 20241016
  Receipt Date: 20241121
  Transmission Date: 20250114
  Serious: Yes (Death, Other)
  Sender: GENMAB
  Company Number: JP-GENMAB-2024-03797

PATIENT
  Age: 75 Year
  Sex: Male

DRUGS (2)
  1. EPKINLY [Suspect]
     Active Substance: EPCORITAMAB-BYSP
     Indication: Diffuse large B-cell lymphoma
     Dosage: UNK, FOUR CYCLES
     Route: 058
     Dates: start: 2024, end: 2024
  2. PREDNISOLONE [Concomitant]
     Active Substance: PREDNISOLONE
     Indication: Premedication
     Dosage: UNK
     Dates: start: 2024, end: 2024

REACTIONS (2)
  - Diffuse large B-cell lymphoma [Fatal]
  - Hypokalaemia [Unknown]

NARRATIVE: CASE EVENT DATE: 20240101
